FAERS Safety Report 9531167 (Version 1)
Quarter: 2013Q3

REPORT INFORMATION
  Report Type: Report from Study
  Country: NL (occurrence: NL)
  Receive Date: 20130918
  Receipt Date: 20130918
  Transmission Date: 20140515
  Serious: Yes (Death)
  Sender: FDA-Public Use
  Company Number: PHHY2013NL103326

PATIENT
  Age: 40 Year
  Sex: Male

DRUGS (2)
  1. SANDOSTATIN LAR [Suspect]
     Indication: THYMOMA MALIGNANT
     Dosage: 20 MG/ 2 ML
  2. SANDOSTATIN LAR [Suspect]
     Dosage: 20 MG/ 2 ML
     Dates: start: 20130820

REACTIONS (1)
  - Death [Fatal]
